FAERS Safety Report 5921147-4 (Version None)
Quarter: 2008Q4

REPORT INFORMATION
  Report Type: 
  Country: None (occurrence: None)
  Receive Date: 20081016
  Receipt Date: 20081009
  Transmission Date: 20090506
  Serious: Yes (Other)
  Sender: FDA-Public Use
  Company Number: US-ASTRAZENECA-2008UW12937

PATIENT
  Age: 69 Year
  Sex: Female
  Weight: 68 kg

DRUGS (8)
  1. ARIMIDEX [Suspect]
     Indication: BREAST CANCER
     Route: 048
     Dates: start: 20040401
  2. COZAAR [Concomitant]
  3. ZOCOR [Concomitant]
  4. ACTONEL [Concomitant]
  5. GLUCOSAMINE [Concomitant]
     Indication: ARTHRITIS
  6. LOVAZA [Concomitant]
  7. VITAMIN [Concomitant]
     Indication: PROPHYLAXIS
  8. ASPIRIN [Concomitant]

REACTIONS (13)
  - ALOPECIA [None]
  - ARTHRITIS [None]
  - BLOOD CHOLESTEROL INCREASED [None]
  - BLOOD GLUCOSE INCREASED [None]
  - CATARACT [None]
  - DIZZINESS [None]
  - HAND DEFORMITY [None]
  - HOT FLUSH [None]
  - HYPERTENSION [None]
  - JOINT SWELLING [None]
  - OEDEMA PERIPHERAL [None]
  - SOMNOLENCE [None]
  - WEIGHT LOSS POOR [None]
